FAERS Safety Report 21221379 (Version 1)
Quarter: 2022Q3

REPORT INFORMATION
  Report Type: Spontaneous
  Country: US (occurrence: None)
  Receive Date: 20220816
  Receipt Date: 20220816
  Transmission Date: 20221027
  Serious: Yes (Other)
  Sender: FDA-Public Use
  Company Number: None

PATIENT
  Age: 50 Year
  Sex: Female
  Weight: 110 kg

DRUGS (1)
  1. PAXLOVID [Suspect]
     Active Substance: NIRMATRELVIR\RITONAVIR
     Indication: COVID-19
     Dosage: FREQUENCY : TWICE A DAY;?
     Route: 048
     Dates: start: 20220707, end: 20220707

REACTIONS (7)
  - Angioedema [None]
  - Wheezing [None]
  - Wheezing [None]
  - Breath sounds abnormal [None]
  - Stridor [None]
  - Speech disorder [None]
  - Anaphylactic reaction [None]

NARRATIVE: CASE EVENT DATE: 20220707
